FAERS Safety Report 24324261 (Version 1)
Quarter: 2024Q3

REPORT INFORMATION
  Report Type: Spontaneous
  Country: US (occurrence: US)
  Receive Date: 20240916
  Receipt Date: 20240916
  Transmission Date: 20241017
  Serious: Yes (Other)
  Sender: PFIZER
  Company Number: US-PFIZER INC-202400254989

PATIENT
  Age: 15 Year
  Sex: Male

DRUGS (3)
  1. OXBRYTA [Suspect]
     Active Substance: VOXELOTOR
     Dosage: 3 DF, 1X/DAY (HE TAKES THREE TABLETS)
     Dates: start: 2023
  2. OXBRYTA [Suspect]
     Active Substance: VOXELOTOR
     Dosage: 2 DF, 1X/DAY (HE USED TO TAKE TWO TABLETS FOR ONE WEEK)
  3. OXBRYTA [Suspect]
     Active Substance: VOXELOTOR
     Dosage: 1 DF, 1X/DAY (NOW HE IS TAKING ONE PER DAY)
     Dates: start: 2024

REACTIONS (2)
  - Drug ineffective [Unknown]
  - Off label use [Unknown]
